FAERS Safety Report 7718192-5 (Version None)
Quarter: 2011Q3

REPORT INFORMATION
  Report Type: 
  Country: None (occurrence: None)
  Receive Date: 20110830
  Receipt Date: 20110818
  Transmission Date: 20111222
  Serious: Yes (Other)
  Sender: FDA-Public Use
  Company Number: PHEH2011US02179

PATIENT
  Sex: Male

DRUGS (5)
  1. WELLBUTRIN [Suspect]
     Dosage: UNK UKN, UNK
  2. EFFEXOR XR [Suspect]
     Dosage: UNK UKN, UNK
  3. TEGRETOL [Suspect]
     Dosage: UNK UKN, UNK
  4. EFFEXOR [Suspect]
     Dosage: UNK UKN, UNK
  5. EFFEXOR [Suspect]
     Dosage: 37.5 MG, UNK

REACTIONS (8)
  - INFLUENZA [None]
  - GASTRIC ULCER [None]
  - AGGRESSION [None]
  - INSOMNIA [None]
  - AGITATION [None]
  - RECTAL HAEMORRHAGE [None]
  - CONSTIPATION [None]
  - ABNORMAL BEHAVIOUR [None]
